FAERS Safety Report 10337463 (Version 3)
Quarter: 2016Q3

REPORT INFORMATION
  Report Type: Report from Study
  Country: US (occurrence: US)
  Receive Date: 20140724
  Receipt Date: 20160809
  Transmission Date: 20161109
  Serious: Yes (Other)
  Sender: FDA-Public Use
  Company Number: US-ACTELION-A-NJ2014-102589

PATIENT
  Age: 66 Year
  Sex: Female

DRUGS (20)
  1. ISOSORBIDE MONONITRATE. [Concomitant]
     Active Substance: ISOSORBIDE MONONITRATE
     Dosage: UNK, TID
  2. HYDRALAZINE [Concomitant]
     Active Substance: HYDRALAZINE HYDROCHLORIDE
     Dosage: 50 MG, TID
  3. TICLID [Concomitant]
     Active Substance: TICLOPIDINE HYDROCHLORIDE
     Dosage: 250 MG, QD
  4. VENTOLIN [Concomitant]
     Active Substance: ALBUTEROL SULFATE
  5. LETAIRIS [Concomitant]
     Active Substance: AMBRISENTAN
     Dosage: 10 MG, QD
  6. VYTORIN [Concomitant]
     Active Substance: EZETIMIBE\SIMVASTATIN
     Dosage: 10 MG, QD
  7. COLACE [Concomitant]
     Active Substance: DOCUSATE SODIUM
     Dosage: 100 MG, QD
  8. AMLODIPINE [Concomitant]
     Active Substance: AMLODIPINE BESYLATE
  9. NOVOLOG [Concomitant]
     Active Substance: INSULIN ASPART
     Dosage: 100 IU, UNK
     Route: 058
  10. LANTUS [Concomitant]
     Active Substance: INSULIN GLARGINE
     Dosage: 100 IU, UNK
  11. LYRICA [Concomitant]
     Active Substance: PREGABALIN
     Dosage: 75 MG, QD
  12. SINGULAIR [Concomitant]
     Active Substance: MONTELUKAST SODIUM
     Dosage: 10 MG, QD
  13. FOLIC ACID. [Concomitant]
     Active Substance: FOLIC ACID
  14. OPSUMIT [Suspect]
     Active Substance: MACITENTAN
     Indication: PULMONARY ARTERIAL HYPERTENSION
     Dosage: 10 MG, UNK
     Route: 048
     Dates: start: 20140115
  15. AVAPRO [Concomitant]
     Active Substance: IRBESARTAN
     Dosage: 300 MG, QD
  16. COREG [Concomitant]
     Active Substance: CARVEDILOL
     Dosage: 25 MG, BID
  17. PRILOSEC [Concomitant]
     Active Substance: OMEPRAZOLE MAGNESIUM
  18. ADVAIR HFA [Concomitant]
     Active Substance: FLUTICASONE PROPIONATE\SALMETEROL XINAFOATE
  19. LISINOPRIL. [Concomitant]
     Active Substance: LISINOPRIL
     Dosage: 20 MG, QD
  20. NORVASC [Concomitant]
     Active Substance: AMLODIPINE BESYLATE
     Dosage: 5 MG, QD

REACTIONS (4)
  - Fatigue [Unknown]
  - Dialysis [Unknown]
  - Dyspnoea [Unknown]
  - Asthenia [Unknown]
